FAERS Safety Report 7402258-3 (Version None)
Quarter: 2011Q2

REPORT INFORMATION
  Report Type: 
  Country: None (occurrence: None)
  Receive Date: 20110408
  Receipt Date: 20101118
  Transmission Date: 20111010
  Serious: Yes (Hospitalization)
  Sender: FDA-Public Use
  Company Number: US-BAYER-201028175NA

PATIENT
  Age: 39 Year
  Sex: Female
  Weight: 86.364 kg

DRUGS (15)
  1. ADIPEX [Concomitant]
     Indication: POLYCYSTIC OVARIES
  2. OTHER CHOLESTEROL AND TRIGLYCERIDE REDUCERS [Concomitant]
     Indication: BLOOD TRIGLYCERIDES ABNORMAL
     Dates: start: 20090901
  3. YAZ [Suspect]
     Indication: PREMENSTRUAL SYNDROME
  4. OTHER CHOLESTEROL AND TRIGLYCERIDE REDUCERS [Concomitant]
     Indication: BLOOD CHOLESTEROL ABNORMAL
  5. IBUPROFEN [Concomitant]
  6. ALEVE [Concomitant]
  7. YASMIN [Suspect]
     Indication: CONTRACEPTION
  8. YAZ [Suspect]
     Indication: CONTRACEPTION
     Route: 048
     Dates: start: 20070201, end: 20071001
  9. YASMIN [Suspect]
     Indication: PREMENSTRUAL SYNDROME
     Dates: start: 20070201, end: 20071001
  10. DYAZIDE [Concomitant]
     Indication: HYPERTENSION
     Dates: start: 20090901
  11. IBUPROFEN (ADVIL) [Concomitant]
  12. KLONOPIN [Concomitant]
     Indication: ANXIETY
     Dates: start: 20090901
  13. TYLENOL (CAPLET) [Concomitant]
  14. PROZAC [Concomitant]
     Indication: DEPRESSION
     Dates: start: 20090901
  15. METFORMIN HCL [Concomitant]
     Indication: POLYCYSTIC OVARIES
     Dates: start: 20090901

REACTIONS (6)
  - ABDOMINAL PAIN UPPER [None]
  - LEUKOCYTOSIS [None]
  - CHOLELITHIASIS [None]
  - CHOLECYSTITIS ACUTE [None]
  - NAUSEA [None]
  - VOMITING [None]
